FAERS Safety Report 10420255 (Version 1)
Quarter: 2014Q3

REPORT INFORMATION
  Report Type: Report from Study
  Country: US (occurrence: None)
  Receive Date: 20140804
  Receipt Date: 20140804
  Transmission Date: 20150326
  Serious: Yes (Hospitalization)
  Sender: FDA-Public Use
  Company Number: 2013US008727

PATIENT
  Age: 67 Year
  Sex: Female
  Weight: 90.7 kg

DRUGS (8)
  1. HEPARIN FLUSH (HEPARIN SODIUM) [Concomitant]
  2. OMEGA-3?/01866101/ (SALMO SALAR OIL) [Concomitant]
  3. LASIX /00032601/ (FUROSEMIDE) [Concomitant]
  4. ADCIRCA [Concomitant]
     Active Substance: TADALAFIL
  5. PULMICORT TURBUHALER [Concomitant]
     Active Substance: BUDESONIDE
  6. GLASSIA [Suspect]
     Active Substance: .ALPHA.1-PROTEINASE INHIBITOR HUMAN
     Indication: ALPHA-1 ANTI-TRYPSIN DEFICIENCY
     Dosage: 6000 MG, WEEKLY, INTRAVENOUS
     Route: 042
     Dates: start: 2010
  7. EYE DROPS?1002565021(TETRYZOLINE HYDROCHLORIDE) [Concomitant]
  8. VENTAVIS (ILOPROST TROMETAMOL) [Concomitant]

REACTIONS (2)
  - Pneumonia [None]
  - Dehydration [None]

NARRATIVE: CASE EVENT DATE: 20130522
